FAERS Safety Report 6363376-4 (Version None)
Quarter: 2009Q3

REPORT INFORMATION
  Report Type: 
  Country: None (occurrence: None)
  Receive Date: 20090919
  Receipt Date: 20090629
  Transmission Date: 20100115
  Serious: No
  Sender: FDA-Public Use
  Company Number: US-ABBOTT-09P-163-0582326-00

PATIENT
  Sex: Female
  Weight: 108.51 kg

DRUGS (2)
  1. HUMIRA [Suspect]
     Indication: RHEUMATOID ARTHRITIS
  2. HUMIRA [Suspect]
     Dates: start: 20090604

REACTIONS (2)
  - DRUG INEFFECTIVE [None]
  - PROCEDURAL COMPLICATION [None]
